FAERS Safety Report 9756778 (Version 2)
Quarter: 2014Q1

REPORT INFORMATION
  Report Type: Spontaneous
  Country: US (occurrence: US)
  Receive Date: 20131213
  Receipt Date: 20140114
  Transmission Date: 20141002
  Serious: Yes (Hospitalization, Other)
  Sender: FDA-Public Use
  Company Number: US-PFIZER INC-2013356457

PATIENT
  Age: 57 Year
  Sex: Male
  Weight: 83.9 kg

DRUGS (2)
  1. VIAGRA [Suspect]
     Indication: ERECTILE DYSFUNCTION
     Dosage: UNK
  2. PERCOCET [Concomitant]
     Indication: PAIN
     Dosage: 10 MG OF OXYCODONE HYDROCHLORIDE/325 MG OF ACETAMINOPHEN, 5X/DAY

REACTIONS (2)
  - Prostate cancer [Unknown]
  - Spinal disorder [Unknown]
